FAERS Safety Report 10069642 (Version 2)
Quarter: 2014Q2

REPORT INFORMATION
  Report Type: Spontaneous
  Country: US (occurrence: US)
  Receive Date: 20140410
  Receipt Date: 20140414
  Transmission Date: 20141212
  Serious: Yes (Other)
  Sender: FDA-Public Use
  Company Number: US-ROCHE-1378604

PATIENT
  Age: 73 Year
  Sex: Female

DRUGS (16)
  1. LUCENTIS [Suspect]
     Indication: MACULAR DEGENERATION
     Route: 050
     Dates: start: 20121026
  2. ASPIRIN [Concomitant]
     Route: 065
  3. BUMETANIDE [Concomitant]
     Route: 065
  4. FISH OIL [Concomitant]
     Route: 065
  5. FLAXSEED OIL [Concomitant]
     Route: 065
  6. FOLIC ACID [Concomitant]
     Route: 065
  7. GLIPIZIDE [Concomitant]
     Route: 065
  8. LEVOTHYROXINE SODIUM [Concomitant]
     Route: 065
  9. METFORMIN [Concomitant]
     Route: 065
  10. METOPROLOL SUCCINATE [Concomitant]
     Route: 065
  11. MIRALAX [Concomitant]
  12. RANITIDINE HCL [Concomitant]
     Route: 065
  13. SENOKOT [Concomitant]
     Route: 065
  14. SIMVASTATIN [Concomitant]
     Route: 065
  15. VITAMIN C [Concomitant]
     Route: 065
  16. ZINC SULFATE [Concomitant]

REACTIONS (3)
  - Skin cancer [Unknown]
  - Malignant melanoma [Recovering/Resolving]
  - Precancerous cells present [Unknown]
